FAERS Safety Report 4624002-5 (Version None)
Quarter: 2005Q1

REPORT INFORMATION
  Report Type: 
  Country: None (occurrence: None)
  Receive Date: 20050331
  Receipt Date: 20050322
  Transmission Date: 20050727
  Serious: Yes (Hospitalization, Disabling)
  Sender: FDA-Public Use
  Company Number: JP-JNJFOC-20050200410

PATIENT
  Sex: Male

DRUGS (2)
  1. ITRIZOLE [Suspect]
     Route: 049
  2. ITRIZOLE [Suspect]
     Route: 049

REACTIONS (10)
  - CARDIAC FAILURE [None]
  - CONDITION AGGRAVATED [None]
  - CONGESTIVE CARDIOMYOPATHY [None]
  - DYSPNOEA EXERTIONAL [None]
  - FUNGAL INFECTION [None]
  - LUNG NEOPLASM [None]
  - NECROSIS [None]
  - PLEURAL EFFUSION [None]
  - PULMONARY GRANULOMA [None]
  - PULMONARY MYCOSIS [None]
